FAERS Safety Report 5150853-7 (Version None)
Quarter: 2006Q4

REPORT INFORMATION
  Report Type: 
  Country: None (occurrence: None)
  Receive Date: 20061108
  Receipt Date: 20061026
  Transmission Date: 20070319
  Serious: Yes (Hospitalization)
  Sender: FDA-Public Use
  Company Number: 6026916

PATIENT
  Age: 62 Year
  Sex: Female

DRUGS (12)
  1. LEVOTHYROXINE SODIUM [Suspect]
     Indication: POST PROCEDURAL HYPOTHYROIDISM
     Dosage: 125 MCG (125 MCG, 1 IN 1 D); ORAL
     Route: 048
  2. HYDROCORTISONE [Suspect]
     Indication: ADRENAL CORTICAL INSUFFICIENCY
     Dosage: 60 MG (60 MG, 1 D); ORAL
     Route: 048
  3. CIPROFLOXACIN HCL [Suspect]
     Indication: DRUG USE FOR UNKNOWN INDICATION
     Dosage: 400 MG (400 MG, 1 D), 200 MG (200 MG, 1 D)
     Dates: start: 20060911, end: 20060918
  4. CIPROFLOXACIN HCL [Suspect]
     Indication: DRUG USE FOR UNKNOWN INDICATION
     Dosage: 400 MG (400 MG, 1 D), 200 MG (200 MG, 1 D)
     Dates: start: 20060919, end: 20060926
  5. PERINDOPRIL ERBUMINE [Concomitant]
  6. NEXIUM [Suspect]
     Indication: DRUG USE FOR UNKNOWN INDICATION
     Dosage: 20 MG (20 MG, 1 IN 1 D); ORAL
     Route: 048
     Dates: start: 20060911, end: 20060927
  7. PREVISCAN [Suspect]
     Indication: VASCULITIS CEREBRAL
     Dosage: 1, 25 DOSAGE FORMS (1, 25 DOSAGE FORMS, 1 IN 1 D); ORAL
     Route: 048
     Dates: start: 20060918, end: 20060928
  8. TRAMADOL HCL [Suspect]
     Indication: DRUG USE FOR UNKNOWN INDICATION
     Dosage: 6 DOSAGE FORMS (2 DOSAGE FORMS, 3 IN 1 D); ORAL
     Route: 048
     Dates: start: 20060919, end: 20060928
  9. . [Concomitant]
  10. . [Concomitant]
  11. SPASFON (PHLOROGLUCINOL, TRIMETHYLPHLOROGLUCINOL) [Concomitant]
  12. HEPARIN [Concomitant]

REACTIONS (7)
  - ADRENAL CORTICAL INSUFFICIENCY [None]
  - CEREBRAL VENOUS THROMBOSIS [None]
  - CYTOLYTIC HEPATITIS [None]
  - HEPATIC NEOPLASM [None]
  - HEPATITIS CHOLESTATIC [None]
  - LIVER ABSCESS [None]
  - VASCULITIS CEREBRAL [None]
